FAERS Safety Report 7702031-2 (Version None)
Quarter: 2011Q3

REPORT INFORMATION
  Report Type: 
  Country: None (occurrence: None)
  Receive Date: 20110822
  Receipt Date: 20110809
  Transmission Date: 20111222
  Serious: Yes (Other)
  Sender: FDA-Public Use
  Company Number: PHHY2011US14323

PATIENT
  Sex: Female
  Weight: 63 kg

DRUGS (3)
  1. GILENYA [Suspect]
     Dosage: 0.5 MG, QOD
     Route: 048
     Dates: end: 20110221
  2. VESICARE [Concomitant]
     Indication: HYPERTONIC BLADDER
     Dosage: 1 DF, DAILY
     Route: 048
     Dates: start: 20101019
  3. GILENYA [Suspect]
     Indication: MULTIPLE SCLEROSIS
     Dosage: 0.5 MG, DAILY
     Route: 048
     Dates: start: 20110215

REACTIONS (6)
  - NAUSEA [None]
  - DIZZINESS [None]
  - VOMITING [None]
  - INCORRECT DOSE ADMINISTERED [None]
  - DEAFNESS UNILATERAL [None]
  - VERTIGO [None]
